FAERS Safety Report 8891120 (Version 2)
Quarter: 2012Q4

REPORT INFORMATION
  Report Type: 
  Country: IL (occurrence: IL)
  Receive Date: 20121107
  Receipt Date: 20121119
  Transmission Date: 20130627
  Serious: Yes (Other)
  Sender: FDA-Public Use
  Company Number: IL-PFIZER INC-2012277149

PATIENT
  Age: 57 Year
  Sex: Male

DRUGS (3)
  1. LYRICA [Suspect]
     Indication: NEUROPATHIC PAIN
     Dosage: 75 mg, 2x/day
     Route: 048
     Dates: start: 2010, end: 201210
  2. CYMBALTA [Suspect]
     Indication: NEUROPATHY
     Dosage: 90 mg
  3. TARGIN [Concomitant]
     Dosage: UNK

REACTIONS (7)
  - Dysuria [Unknown]
  - Urinary tract disorder [Unknown]
  - Condition aggravated [Unknown]
  - Feeling abnormal [Unknown]
  - Sexual dysfunction [Unknown]
  - Drug ineffective [Unknown]
  - Pain in extremity [Not Recovered/Not Resolved]
